FAERS Safety Report 17146661 (Version 2)
Quarter: 2020Q2

REPORT INFORMATION
  Report Type: Report from Study
  Country: EG (occurrence: EG)
  Receive Date: 20191212
  Receipt Date: 20200427
  Transmission Date: 20200713
  Serious: Yes (Other)
  Sender: FDA-Public Use
  Company Number: NVSC2019EG060593

PATIENT
  Age: 7 Year
  Sex: Male
  Weight: 23 kg

DRUGS (2)
  1. OMEGA 3 [Concomitant]
     Active Substance: OMEGA-3 FATTY ACIDS
     Indication: PRODUCT USED FOR UNKNOWN INDICATION
     Dosage: UNK, QD
     Route: 065
  2. OMNITROPE [Suspect]
     Active Substance: SOMATROPIN
     Indication: BODY HEIGHT BELOW NORMAL
     Dosage: 0.5 MG
     Route: 058
     Dates: start: 201712, end: 201903

REACTIONS (5)
  - Ear infection [Recovering/Resolving]
  - Liquid product physical issue [Not Recovered/Not Resolved]
  - Otorrhoea [Recovering/Resolving]
  - Nasopharyngitis [Recovered/Resolved]
  - Drug ineffective [Not Recovered/Not Resolved]

NARRATIVE: CASE EVENT DATE: 201903
